FAERS Safety Report 16485608 (Version 1)
Quarter: 2019Q2

REPORT INFORMATION
  Report Type: Report from Study
  Country: IT (occurrence: IT)
  Receive Date: 20190627
  Receipt Date: 20190627
  Transmission Date: 20190711
  Serious: Yes (Other)
  Sender: FDA-Public Use
  Company Number: IT-ACCORD-135284

PATIENT
  Age: 89 Year
  Sex: Female

DRUGS (2)
  1. QUETIAPINE. [Suspect]
     Active Substance: QUETIAPINE
     Indication: DEPRESSION
     Dosage: LAST ADMINISTRATION: 02-JUN-2019
     Route: 048
     Dates: start: 20190531
  2. MEMANTINE. [Concomitant]
     Active Substance: MEMANTINE
     Route: 048

REACTIONS (2)
  - Dizziness [Recovering/Resolving]
  - Condition aggravated [Recovering/Resolving]

NARRATIVE: CASE EVENT DATE: 20190602
